FAERS Safety Report 16475244 (Version 2)
Quarter: 2019Q3

REPORT INFORMATION
  Report Type: Spontaneous
  Country: US (occurrence: US)
  Receive Date: 20190625
  Receipt Date: 20190812
  Transmission Date: 20191004
  Serious: No
  Sender: FDA-Public Use
  Company Number: US-SA-2019SA168166

PATIENT
  Age: 17 Year
  Sex: Female

DRUGS (1)
  1. DUPIXENT [Suspect]
     Active Substance: DUPILUMAB
     Dosage: UNK, OTHER
     Route: 058
     Dates: start: 20180326

REACTIONS (2)
  - Therapeutic product effect decreased [Unknown]
  - Weight increased [Unknown]

NARRATIVE: CASE EVENT DATE: 201806
